FAERS Safety Report 14608293 (Version 3)
Quarter: 2018Q1

REPORT INFORMATION
  Report Type: Report from Study
  Country: US (occurrence: US)
  Receive Date: 20180307
  Receipt Date: 20180325
  Transmission Date: 20180509
  Serious: Yes (Hospitalization)
  Sender: FDA-Public Use
  Company Number: US-EISAI MEDICAL RESEARCH-EC-2018-036675

PATIENT
  Age: 6 Year
  Sex: Female
  Weight: 14.7 kg

DRUGS (9)
  1. MIRALAX [Concomitant]
     Active Substance: POLYETHYLENE GLYCOL 3350
  2. FLUTICASONE PROPRIONATE [Concomitant]
     Active Substance: FLUTICASONE PROPIONATE
  3. PERAMPANEL [Suspect]
     Active Substance: PERAMPANEL
     Route: 048
     Dates: start: 20171107, end: 20171114
  4. PERAMPANEL [Suspect]
     Active Substance: PERAMPANEL
     Route: 048
     Dates: start: 20180122
  5. PHENOBARBITAL. [Concomitant]
     Active Substance: PHENOBARBITAL
  6. PERAMPANEL [Suspect]
     Active Substance: PERAMPANEL
     Dosage: UNKNOWN DOSE WITH WEEKLY DOSE TITRATIONS
     Route: 048
     Dates: start: 20171115, end: 20180121
  7. PERAMPANEL [Suspect]
     Active Substance: PERAMPANEL
     Indication: SEIZURE
     Route: 048
     Dates: start: 20171031, end: 20171106
  8. KEPPRA [Concomitant]
     Active Substance: LEVETIRACETAM
  9. ALBUTEROL. [Concomitant]
     Active Substance: ALBUTEROL

REACTIONS (1)
  - Haematemesis [Recovered/Resolved]

NARRATIVE: CASE EVENT DATE: 20180215
